FAERS Safety Report 13921617 (Version 2)
Quarter: 2017Q3

REPORT INFORMATION
  Report Type: Spontaneous
  Country: US (occurrence: US)
  Receive Date: 20170830
  Receipt Date: 20170920
  Transmission Date: 20171127
  Serious: Yes (Death)
  Sender: FDA-Public Use
  Company Number: US-LUNDBECK-DKLU2036207

PATIENT
  Age: 68 Year
  Sex: Female

DRUGS (1)
  1. NORTHERA [Suspect]
     Active Substance: DROXIDOPA
     Indication: NEURODEGENERATIVE DISORDER
     Route: 048
     Dates: start: 20160112

REACTIONS (4)
  - Dysphagia [Fatal]
  - Urinary tract infection [Fatal]
  - Multiple system atrophy [Fatal]
  - Disease progression [Fatal]

NARRATIVE: CASE EVENT DATE: 20170808
